FAERS Safety Report 4942935-7 (Version None)
Quarter: 2006Q1

REPORT INFORMATION
  Report Type: 
  Country: None (occurrence: None)
  Receive Date: 20060309
  Receipt Date: 20060227
  Transmission Date: 20060701
  Serious: Yes (Death)
  Sender: FDA-Public Use
  Company Number: 222187

PATIENT
  Sex: Female

DRUGS (3)
  1. MABTHERA (RITUXIMAB) CONC FOR SOLUTION FOR INFUSION [Suspect]
     Indication: NEUROMYELITIS OPTICA
     Dosage: 1 G, Q2W, INTRAVENOUS
     Route: 042
  2. HEPARIN [Concomitant]
  3. CORTISON (CORTISONE ACETATE) [Concomitant]

REACTIONS (3)
  - AUTONOMIC NERVOUS SYSTEM IMBALANCE [None]
  - DEEP VEIN THROMBOSIS [None]
  - SUDDEN DEATH [None]
